FAERS Safety Report 18620245 (Version 1)
Quarter: 2020Q4

REPORT INFORMATION
  Report Type: Spontaneous
  Country: JP (occurrence: JP)
  Receive Date: 20201215
  Receipt Date: 20201215
  Transmission Date: 20210114
  Serious: Yes (Death, Hospitalization)
  Sender: FDA-Public Use
  Company Number: JP-MYLANLABS-2020M1102085

PATIENT
  Sex: Female

DRUGS (8)
  1. PREDNISOLONE. [Suspect]
     Active Substance: PREDNISOLONE
     Indication: IMMUNOSUPPRESSANT DRUG THERAPY
     Dosage: AT DOSES 0.25-0.5 MG/KG
     Route: 065
  2. TACROLIMUS. [Suspect]
     Active Substance: TACROLIMUS
     Indication: PROPHYLAXIS AGAINST GRAFT VERSUS HOST DISEASE
     Dosage: 0.02 MILLIGRAM/KILOGRAM, QD, FROM DAY -1
     Route: 065
  3. MYCOPHENOLATE MOFETIL. [Suspect]
     Active Substance: MYCOPHENOLATE MOFETIL
     Indication: IMMUNOSUPPRESSANT DRUG THERAPY
     Route: 065
  4. METHYLPREDNISOLONE. [Suspect]
     Active Substance: METHYLPREDNISOLONE
     Indication: ACUTE GRAFT VERSUS HOST DISEASE IN SKIN
     Route: 065
  5. IMMUNOGLOBULIN                     /00025201/ [Concomitant]
     Active Substance: HUMAN IMMUNOGLOBULIN G
     Indication: IMMUNE RECONSTITUTION INFLAMMATORY SYNDROME
     Route: 065
  6. METHYLPREDNISOLONE. [Suspect]
     Active Substance: METHYLPREDNISOLONE
     Indication: IMMUNOSUPPRESSANT DRUG THERAPY
  7. METHOTREXATE. [Suspect]
     Active Substance: METHOTREXATE
     Indication: PROPHYLAXIS AGAINST GRAFT VERSUS HOST DISEASE
     Dosage: 15 MILLIGRAM, 15MG ON DAY +1
     Route: 065
  8. METHOTREXATE. [Suspect]
     Active Substance: METHOTREXATE
     Dosage: 10 MILLIGRAM, ON DAYS +3, +6, AND +11
     Route: 065

REACTIONS (9)
  - Chronic graft versus host disease oral [Recovering/Resolving]
  - Listeriosis [Recovering/Resolving]
  - Mycobacterium kansasii infection [Recovered/Resolved]
  - Arthritis bacterial [Recovering/Resolving]
  - Graft versus host disease in lung [Fatal]
  - Osteonecrosis [Recovering/Resolving]
  - Condition aggravated [Fatal]
  - Chronic graft versus host disease in skin [Recovering/Resolving]
  - Thrombotic microangiopathy [Recovering/Resolving]
